FAERS Safety Report 7922786-1 (Version None)
Quarter: 2011Q4

REPORT INFORMATION
  Report Type: 
  Country: None (occurrence: None)
  Receive Date: 20111117
  Receipt Date: 20110124
  Transmission Date: 20120403
  Serious: Yes (Hospitalization)
  Sender: FDA-Public Use
  Company Number: US-AMGEN-USASP2011004283

PATIENT
  Age: 56 Year
  Sex: Female

DRUGS (3)
  1. ENBREL [Suspect]
     Indication: PSORIATIC ARTHROPATHY
  2. PLAQUENIL [Concomitant]
  3. ENBREL [Suspect]
     Indication: RHEUMATOID ARTHRITIS
     Dosage: 25 MG, 2 TIMES/WK
     Dates: start: 20000101, end: 20110113

REACTIONS (10)
  - PNEUMONIA [None]
  - BRONCHITIS [None]
  - HERPES ZOSTER [None]
  - STAPHYLOCOCCAL INFECTION [None]
  - RASH [None]
  - RHEUMATOID ARTHRITIS [None]
  - ERYTHEMA [None]
  - INJECTION SITE PAIN [None]
  - PSORIATIC ARTHROPATHY [None]
  - INFLUENZA [None]
